FAERS Safety Report 5350869-1 (Version None)
Quarter: 2007Q2

REPORT INFORMATION
  Report Type: 
  Country: None (occurrence: None)
  Receive Date: 20070608
  Receipt Date: 20070604
  Transmission Date: 20071010
  Serious: Yes (Life-Threatening)
  Sender: FDA-Public Use
  Company Number: B0470514A

PATIENT
  Age: 13 Year
  Sex: Male

DRUGS (2)
  1. RELENZA [Suspect]
     Indication: INFLUENZA
     Dosage: 10MG TWICE PER DAY
     Route: 055
     Dates: start: 20070502, end: 20070504
  2. LAC B [Concomitant]
     Dosage: 30MG PER DAY
     Route: 048
     Dates: start: 20070502, end: 20070507

REACTIONS (1)
  - ERYTHEMA MULTIFORME [None]
